FAERS Safety Report 8615550-1 (Version None)
Quarter: 2012Q3

REPORT INFORMATION
  Report Type: 
  Country: None (occurrence: None)
  Receive Date: 20120823
  Receipt Date: 20120810
  Transmission Date: 20120928
  Serious: Yes (Other)
  Sender: FDA-Public Use
  Company Number: US-ARROW-2012-14328

PATIENT
  Age: 36 Year
  Sex: Female

DRUGS (1)
  1. TOPIRAMATE [Suspect]
     Indication: MIGRAINE
     Dosage: 25 MG, DAILY
     Route: 065

REACTIONS (3)
  - MYOPIA [None]
  - ANGLE CLOSURE GLAUCOMA [None]
  - CHOROIDAL EFFUSION [None]
